FAERS Safety Report 6078149-X (Version None)
Quarter: 2009Q1

REPORT INFORMATION
  Report Type: 
  Country: None (occurrence: None)
  Receive Date: 20090213
  Receipt Date: 20090205
  Transmission Date: 20090719
  Serious: Yes (Other)
  Sender: FDA-Public Use
  Company Number: FR-B.I. PHARMACEUTICALS,INC./RIDGEFIELD-2009-FF-00079FF

PATIENT
  Sex: Male

DRUGS (6)
  1. SIFROL [Suspect]
     Indication: PARKINSON'S DISEASE
     Dosage: 2.1MG
     Route: 048
  2. APOKINON [Suspect]
     Indication: PARKINSON'S DISEASE
     Dosage: 100MG
     Route: 058
     Dates: start: 20080801
  3. STALEVO 100 [Concomitant]
     Indication: PARKINSON'S DISEASE
     Dosage: 150MG
     Route: 048
  4. EQUANIL [Concomitant]
     Dosage: 750MG
  5. ATARAX [Concomitant]
     Dosage: 75MG
  6. DOMPERIDONE [Concomitant]
     Route: 048

REACTIONS (2)
  - COMPULSIVE SEXUAL BEHAVIOUR [None]
  - COMPULSIVE SHOPPING [None]
